FAERS Safety Report 8918869 (Version 1)
Quarter: 2012Q4

REPORT INFORMATION
  Report Type: Spontaneous
  Country: US (occurrence: None)
  Receive Date: 20121115
  Receipt Date: 20121115
  Transmission Date: 20130627
  Serious: Yes (Hospitalization)
  Sender: FDA-Public Use
  Company Number: None

PATIENT
  Age: 60 Year
  Sex: Female
  Weight: 51.71 kg

DRUGS (2)
  1. VORINOSTAT [Suspect]
     Indication: LUNG ADENOCARCINOMA METASTATIC
     Dosage: MWF
     Dates: start: 20121026, end: 20121102
  2. PEMETREXED [Suspect]
     Indication: LUNG ADENOCARCINOMA METASTATIC
     Dates: start: 20121029

REACTIONS (2)
  - Perivascular dermatitis [None]
  - Toxicity to various agents [None]
